FAERS Safety Report 9046581 (Version 1)
Quarter: 2013Q2

REPORT INFORMATION
  Report Type: Spontaneous
  Country: US (occurrence: None)
  Receive Date: 20130128
  Receipt Date: 20130128
  Transmission Date: 20140414
  Serious: Yes (Hospitalization)
  Sender: FDA-Public Use
  Company Number: None

PATIENT
  Age: 63 Year
  Sex: Male

DRUGS (10)
  1. GEMCITABINE [Suspect]
     Indication: PANCREATIC CARCINOMA
     Dosage: Q2WEEKS X2
     Route: 042
     Dates: start: 20130102, end: 20130116
  2. HYDROXYCHLOROQUINE [Suspect]
     Indication: PANCREATIC CARCINOMA
     Dosage: X31 DAYS
     Route: 048
     Dates: start: 20131231, end: 20130122
  3. ASPIRIN [Concomitant]
  4. LIPITOR [Concomitant]
  5. ZANTAC [Concomitant]
  6. CAPHOAL [Concomitant]
  7. COMPAZINO [Concomitant]
  8. ZOFRAN [Concomitant]
  9. XAMPX [Concomitant]
  10. ATIVAN [Concomitant]

REACTIONS (5)
  - Headache [None]
  - Transient ischaemic attack [None]
  - Carotid artery stenosis [None]
  - Vision blurred [None]
  - Balance disorder [None]
